FAERS Safety Report 6798249-6 (Version None)
Quarter: 2010Q2

REPORT INFORMATION
  Report Type: 
  Country: None (occurrence: None)
  Receive Date: 20100623
  Receipt Date: 20100618
  Transmission Date: 20101027
  Serious: Yes (Life-Threatening, Hospitalization)
  Sender: FDA-Public Use
  Company Number: 1000014608

PATIENT
  Age: 73 Year
  Sex: Female
  Weight: 66.2252 kg

DRUGS (7)
  1. MEMANTINE HCL [Suspect]
     Indication: DEMENTIA ALZHEIMER'S TYPE
     Dosage: 20 MG (10 MG, 2 IN  1 D)
     Dates: start: 20091005
  2. ARICEPT [Concomitant]
  3. SEROQUEL [Concomitant]
  4. TRAZODONE HYDROCHLORIDE [Concomitant]
  5. AMLODIPINE BESYLATE AND BENAZEPRIL HCL [Concomitant]
  6. ADVIL LIQUI-GELS [Concomitant]
  7. TYLENOL [Concomitant]

REACTIONS (4)
  - LETHARGY [None]
  - SMALL INTESTINAL OBSTRUCTION [None]
  - TACHYCARDIA [None]
  - URINARY TRACT INFECTION [None]
